FAERS Safety Report 23718763 (Version 1)
Quarter: 2024Q2

REPORT INFORMATION
  Report Type: Spontaneous
  Country: NL (occurrence: NL)
  Receive Date: 20240408
  Receipt Date: 20240408
  Transmission Date: 20240716
  Serious: Yes (Other)
  Sender: FDA-Public Use
  Company Number: None

PATIENT
  Age: 27 Year
  Sex: Female
  Weight: 61.5 kg

DRUGS (1)
  1. DOXYCYCLINE [Suspect]
     Active Substance: DOXYCYCLINE
     Indication: Lyme disease
     Dosage: 1 PIECE 2X A DAY??DOXYCYCLINE DISPERTABLET 100MG / BRAND NAME NOT SPECIFIED
     Route: 065
     Dates: start: 20240212

REACTIONS (2)
  - Mucosal inflammation [Not Recovered/Not Resolved]
  - Fungal infection [Not Recovered/Not Resolved]
